FAERS Safety Report 14755296 (Version 1)
Quarter: 2018Q2

REPORT INFORMATION
  Report Type: Spontaneous
  Country: US (occurrence: US)
  Receive Date: 20180413
  Receipt Date: 20180413
  Transmission Date: 20180711
  Serious: No
  Sender: FDA-Public Use
  Company Number: US-BION-006079

PATIENT
  Age: 59 Year
  Sex: Female
  Weight: 52.15 kg

DRUGS (1)
  1. ALEVE [Suspect]
     Active Substance: NAPROXEN SODIUM
     Indication: PAIN
     Dosage: ALSO RECEIVED ALEVE CAPLET FILM-COATED TABLET AT THE DOSE OF 2 DF FOR TWO DAYS FOR PAIN AND HEADACHE
     Route: 048
     Dates: start: 20170212, end: 20170212

REACTIONS (1)
  - Drug ineffective [Not Recovered/Not Resolved]

NARRATIVE: CASE EVENT DATE: 20170212
